FAERS Safety Report 9728010 (Version 1)
Quarter: 2013Q4

REPORT INFORMATION
  Report Type: Spontaneous
  Country: CA (occurrence: None)
  Receive Date: 20131127
  Receipt Date: 20131127
  Transmission Date: 20140711
  Serious: Yes (Hospitalization)
  Sender: FDA-Public Use
  Company Number: NSR_01314_2013

PATIENT
  Age: 57 Year
  Sex: Male

DRUGS (8)
  1. ATENOLOL (ATENOLOL) (50 MG, 50 MG) [Suspect]
     Indication: PRODUCT USED FOR UNKNOWN INDICATION
     Dosage: (50 DF 1X, (NOT THE PRESCRIBED DOSE)), (DF (REGULAR DOSE))
  2. AMLODIPINE [Concomitant]
  3. LITHIUM [Concomitant]
  4. METHYLPHENIDATE [Concomitant]
  5. LAMOTRIGINE [Concomitant]
  6. LEVOTHYROXINE [Concomitant]
  7. CLONAZEPAM [Concomitant]
  8. MIRTAZAPINE [Concomitant]

REACTIONS (10)
  - Overdose [None]
  - Suicide attempt [None]
  - Somnolence [None]
  - Confusional state [None]
  - Hypotension [None]
  - Sinus bradycardia [None]
  - Electrocardiogram QRS complex prolonged [None]
  - Toxicity to various agents [None]
  - Haemodialysis [None]
  - Depression [None]
